FAERS Safety Report 11947953 (Version 1)
Quarter: 2016Q1

REPORT INFORMATION
  Report Type: Spontaneous
  Country: FI (occurrence: FI)
  Receive Date: 20160125
  Receipt Date: 20160125
  Transmission Date: 20160526
  Serious: Yes (Disabling)
  Sender: FDA-Public Use
  Company Number: FI-ABBVIE-16P-055-1544929-00

PATIENT
  Age: 66 Year
  Sex: Female

DRUGS (4)
  1. DIUREX (HYDROCHLOROTHIAZIDE) [Concomitant]
     Active Substance: HYDROCHLOROTHIAZIDE
     Indication: HYPERTENSION
     Route: 048
  2. TREXAN [Concomitant]
     Active Substance: METHOTREXATE SODIUM
     Indication: RHEUMATIC DISORDER
     Dosage: 3-5 TABLETS PER WEEK
     Route: 048
  3. ZECLAR [Suspect]
     Active Substance: CLARITHROMYCIN
     Indication: SINUSITIS
     Route: 048
     Dates: start: 20151230, end: 20160103
  4. CETIMAX [Concomitant]
     Indication: HYPERSENSITIVITY
     Route: 048

REACTIONS (2)
  - Oral pain [Not Recovered/Not Resolved]
  - Mouth ulceration [Not Recovered/Not Resolved]

NARRATIVE: CASE EVENT DATE: 20160102
